FAERS Safety Report 6342354-5 (Version None)
Quarter: 2009Q3

REPORT INFORMATION
  Report Type: 
  Country: None (occurrence: None)
  Receive Date: 20090907
  Receipt Date: 20090902
  Transmission Date: 20100115
  Serious: Yes (Death, Hospitalization)
  Sender: FDA-Public Use
  Company Number: KR-ELI_LILLY_AND_COMPANY-KR200909000772

PATIENT
  Age: 69 Year
  Sex: Male

DRUGS (11)
  1. PEMETREXED [Suspect]
     Indication: NON-SMALL CELL LUNG CANCER
     Dosage: 870 MG/M2, ON DAY 1 OF EACH CYCLE
     Route: 042
     Dates: start: 20080603, end: 20080729
  2. FOLIC ACID [Concomitant]
     Indication: SUPPLEMENTATION THERAPY
     Dosage: 1 MG, DAILY (1/D)
     Route: 048
     Dates: start: 20080527
  3. VITAMIN B-12 [Concomitant]
     Indication: SUPPLEMENTATION THERAPY
     Dosage: 1 D/F (1MG/2ML), OTHER
     Route: 030
     Dates: start: 20080527, end: 20080527
  4. DEXAMETHASONE [Concomitant]
     Indication: SUPPLEMENTATION THERAPY
     Dosage: 2 D/F (5MG/1ML/AMP)
     Route: 030
     Dates: start: 20080603, end: 20080715
  5. METHYLIN [Concomitant]
     Dates: start: 20080408
  6. STILNOX [Concomitant]
     Indication: SLEEP DISORDER
  7. XANAX [Concomitant]
     Indication: ANXIETY
  8. ERDOSTEINE [Concomitant]
     Indication: ANTITUSSIVE THERAPY
     Dates: start: 20080312
  9. SPIRIVA [Concomitant]
     Indication: CHRONIC OBSTRUCTIVE PULMONARY DISEASE
     Dates: start: 20071116
  10. RANITIDINE HYDROCHLORIDE [Concomitant]
     Indication: DRUG USE FOR UNKNOWN INDICATION
     Dates: start: 20080624
  11. OXYCONTIN [Concomitant]
     Indication: PAIN
     Dates: start: 20080715, end: 20080721

REACTIONS (2)
  - HERPES ZOSTER [None]
  - MALIGNANT NEOPLASM PROGRESSION [None]
